FAERS Safety Report 14368654 (Version 1)
Quarter: 2018Q1

REPORT INFORMATION
  Report Type: Spontaneous
  Country: US (occurrence: US)
  Receive Date: 20180109
  Receipt Date: 20180109
  Transmission Date: 20180509
  Serious: No
  Sender: FDA-Public Use
  Company Number: US-PFIZER INC-2017346553

PATIENT
  Age: 65 Year
  Sex: Male
  Weight: 72.57 kg

DRUGS (2)
  1. INLYTA [Suspect]
     Active Substance: AXITINIB
     Indication: RENAL CELL CARCINOMA
     Dosage: 10 MG, DAILY (TWO 5MG TABLETS PER DAY)
     Route: 048
     Dates: start: 2015
  2. INLYTA [Suspect]
     Active Substance: AXITINIB
     Dosage: 4 MG, DAILY (1MG FOUR TABLETS BY MOUTH DAILY)
     Route: 048
     Dates: start: 201508, end: 20171115

REACTIONS (3)
  - Neoplasm progression [Recovered/Resolved]
  - Protein urine present [Unknown]
  - Gait inability [Not Recovered/Not Resolved]

NARRATIVE: CASE EVENT DATE: 201711
